FAERS Safety Report 21532615 (Version 5)
Quarter: 2023Q2

REPORT INFORMATION
  Report Type: Spontaneous
  Country: US (occurrence: US)
  Receive Date: 20221101
  Receipt Date: 20230607
  Transmission Date: 20230721
  Serious: Yes (Other)
  Sender: FDA-Public Use
  Company Number: US-BRISTOL-MYERS SQUIBB COMPANY-2022-129776

PATIENT
  Age: 81 Year
  Sex: Female

DRUGS (2)
  1. POMALYST [Suspect]
     Active Substance: POMALIDOMIDE
     Indication: Plasma cell myeloma
     Route: 048
     Dates: start: 20220919
  2. POMALYST [Suspect]
     Active Substance: POMALIDOMIDE
     Dosage: 1 DF: 1 CAPSULE?FREQ: TAKE 1 CAPSULE BY MOUTH EVERY OTHER DAY FOR 21 DAYS
     Route: 048
     Dates: start: 20221028

REACTIONS (5)
  - Pruritus [Recovered/Resolved]
  - Nasopharyngitis [Unknown]
  - Alopecia [Unknown]
  - Seasonal allergy [Not Recovered/Not Resolved]
  - Off label use [Unknown]
